FAERS Safety Report 9436497 (Version 1)
Quarter: 2013Q3

REPORT INFORMATION
  Report Type: Report from Study
  Country: MX (occurrence: MX)
  Receive Date: 20130802
  Receipt Date: 20130802
  Transmission Date: 20140515
  Serious: Yes (Other)
  Sender: FDA-Public Use
  Company Number: MX-ROCHE-1255116

PATIENT
  Age: 39 Year
  Sex: Female
  Weight: 85 kg

DRUGS (7)
  1. HERCEPTIN [Suspect]
     Indication: BREAST CANCER
     Route: 042
     Dates: start: 20120725
  2. DOCETAXEL [Concomitant]
     Indication: BREAST CANCER
     Route: 042
     Dates: start: 20120725, end: 201212
  3. CYCLOPHOSPHAMIDE [Concomitant]
     Indication: BREAST CANCER
     Route: 042
     Dates: start: 20120725, end: 201212
  4. DOXORUBICIN [Concomitant]
     Indication: BREAST CANCER
     Route: 042
     Dates: start: 20120725, end: 201212
  5. ZOLEDRONIC ACID [Concomitant]
     Indication: BREAST CANCER
     Route: 042
     Dates: start: 201304
  6. CELECOXIB [Concomitant]
     Indication: BONE PAIN
     Route: 048
     Dates: start: 201112
  7. ACETAMINOPHEN [Concomitant]
     Indication: BONE PAIN
     Route: 048
     Dates: start: 201112

REACTIONS (7)
  - Pulmonary hypertension [Unknown]
  - Cataract [Not Recovered/Not Resolved]
  - Oedema peripheral [Not Recovered/Not Resolved]
  - Menstruation irregular [Not Recovered/Not Resolved]
  - Breast pain [Not Recovered/Not Resolved]
  - Pain in extremity [Not Recovered/Not Resolved]
  - Weight increased [Not Recovered/Not Resolved]
